FAERS Safety Report 23699593 (Version 1)
Quarter: 2024Q2

REPORT INFORMATION
  Report Type: Spontaneous
  Country: AU (occurrence: AU)
  Receive Date: 20240402
  Receipt Date: 20240402
  Transmission Date: 20240716
  Serious: Yes (Other)
  Sender: FDA-Public Use
  Company Number: AU-JNJFOC-20240370375

PATIENT
  Age: 43 Year
  Sex: Male

DRUGS (2)
  1. RISPERDAL [Suspect]
     Active Substance: RISPERIDONE
     Indication: Psychotic disorder
     Route: 048
     Dates: start: 2019
  2. CITALOPRAM [Concomitant]
     Active Substance: CITALOPRAM\CITALOPRAM HYDROBROMIDE
     Indication: Analgesic therapy

REACTIONS (8)
  - Concomitant disease aggravated [Not Recovered/Not Resolved]
  - Coagulation time prolonged [Unknown]
  - Intervertebral disc disorder [Unknown]
  - Renal pain [Not Recovered/Not Resolved]
  - Abdominal pain upper [Not Recovered/Not Resolved]
  - Decreased appetite [Unknown]
  - Weight increased [Unknown]
  - Ejaculation failure [Unknown]

NARRATIVE: CASE EVENT DATE: 20190106
